FAERS Safety Report 11317586 (Version 1)
Quarter: 2015Q3

REPORT INFORMATION
  Report Type: Spontaneous
  Country: US (occurrence: US)
  Receive Date: 20150728
  Receipt Date: 20150728
  Transmission Date: 20151125
  Serious: Yes (Hospitalization, Other)
  Sender: FDA-Public Use
  Company Number: US-MYLANLABS-2015M1024377

PATIENT

DRUGS (8)
  1. LEVETIRACETAM. [Suspect]
     Active Substance: LEVETIRACETAM
     Dosage: 250 MG, BID
     Dates: start: 20140523, end: 20140528
  2. LAMOTRIGINE. [Concomitant]
     Active Substance: LAMOTRIGINE
     Dosage: UNK
     Dates: start: 20140820
  3. LEVETIRACETAM. [Suspect]
     Active Substance: LEVETIRACETAM
     Dosage: 500 MG, HS
     Route: 048
     Dates: start: 20150528
  4. LEVETIRACETAM. [Suspect]
     Active Substance: LEVETIRACETAM
     Dosage: 500 MG, QD
     Route: 048
     Dates: start: 20140528, end: 20140613
  5. LEVETIRACETAM. [Suspect]
     Active Substance: LEVETIRACETAM
     Dosage: 500 MG, BID
     Dates: start: 20140629
  6. LEVETIRACETAM. [Suspect]
     Active Substance: LEVETIRACETAM
     Dosage: 250 MG, AM
     Route: 048
     Dates: start: 20150528
  7. LEVETIRACETAM. [Suspect]
     Active Substance: LEVETIRACETAM
     Dosage: 750 MG, QD
     Route: 048
     Dates: start: 20140613, end: 20140629
  8. PHENOBARBITAL. [Concomitant]
     Active Substance: PHENOBARBITAL
     Dosage: 50 MG, QD
     Dates: start: 20140713, end: 20150225

REACTIONS (3)
  - Drug level increased [Not Recovered/Not Resolved]
  - Seizure [Not Recovered/Not Resolved]
  - Pneumonia [Not Recovered/Not Resolved]
